FAERS Safety Report 22032137 (Version 1)
Quarter: 2023Q1

REPORT INFORMATION
  Report Type: Spontaneous
  Country: RO (occurrence: RO)
  Receive Date: 20230224
  Receipt Date: 20230224
  Transmission Date: 20230418
  Serious: Yes (Hospitalization, Other)
  Sender: FDA-Public Use
  Company Number: RO-EMA-DD-20230208-225467-135810

PATIENT

DRUGS (19)
  1. PREGABALIN [Suspect]
     Active Substance: PREGABALIN
     Indication: Agitation
     Dosage: 225 MILLIGRAM, DAILY
     Route: 065
  2. PREGABALIN [Suspect]
     Active Substance: PREGABALIN
     Indication: Delirium
  3. AMISULPRIDE [Suspect]
     Active Substance: AMISULPRIDE
     Indication: Delirium
     Dosage: 200 MG, QD
     Route: 065
  4. AMISULPRIDE [Suspect]
     Active Substance: AMISULPRIDE
     Indication: Agitation
  5. AMISULPRIDE [Suspect]
     Active Substance: AMISULPRIDE
     Indication: Behaviour disorder
  6. ESCITALOPRAM [Suspect]
     Active Substance: ESCITALOPRAM OXALATE
     Indication: Hallucination, auditory
     Dosage: 10 MILLIGRAM, DAILY
     Route: 065
  7. ESCITALOPRAM [Suspect]
     Active Substance: ESCITALOPRAM OXALATE
     Indication: Depressed mood
  8. ESCITALOPRAM [Suspect]
     Active Substance: ESCITALOPRAM OXALATE
     Indication: Affect lability
  9. GABAPENTIN [Suspect]
     Active Substance: GABAPENTIN
     Indication: Depressed mood
     Dosage: 300 MILLIGRAM, DAILY
     Route: 065
  10. GABAPENTIN [Suspect]
     Active Substance: GABAPENTIN
     Indication: Hallucination, auditory
  11. GABAPENTIN [Suspect]
     Active Substance: GABAPENTIN
     Indication: Affect lability
  12. OLANZAPINE [Suspect]
     Active Substance: OLANZAPINE
     Indication: Affect lability
     Dosage: 7.5 MILLIGRAM, DAILY
     Route: 065
  13. OLANZAPINE [Suspect]
     Active Substance: OLANZAPINE
     Indication: Depressed mood
     Dosage: 10 MILLIGRAM, DAILY
     Route: 065
  14. OLANZAPINE [Suspect]
     Active Substance: OLANZAPINE
     Indication: Hallucination, auditory
     Dosage: 5 MILLIGRAM, DAILY
     Route: 065
  15. QUETIAPINE [Suspect]
     Active Substance: QUETIAPINE
     Indication: Depression
     Dosage: 100 MILLIGRAM, DAILY
     Route: 065
  16. ZUCLOPENTHIXOL [Suspect]
     Active Substance: ZUCLOPENTHIXOL
     Indication: Agitation
     Dosage: 1 VIAL, THREE DOSES
     Route: 065
  17. ZUCLOPENTHIXOL [Suspect]
     Active Substance: ZUCLOPENTHIXOL
     Indication: Behaviour disorder
  18. ZUCLOPENTHIXOL [Suspect]
     Active Substance: ZUCLOPENTHIXOL
     Indication: Delirium
  19. CHOLECALCIFEROL [Concomitant]
     Active Substance: CHOLECALCIFEROL
     Indication: Relapsing-remitting multiple sclerosis
     Route: 065

REACTIONS (4)
  - Hyperprolactinaemia [Recovering/Resolving]
  - Drug ineffective [Recovering/Resolving]
  - Treatment noncompliance [Unknown]
  - Therapy interrupted [Unknown]

NARRATIVE: CASE EVENT DATE: 20201124
